FAERS Safety Report 17254306 (Version 2)
Quarter: 2020Q1

REPORT INFORMATION
  Report Type: Spontaneous
  Country: DE (occurrence: DE)
  Receive Date: 20200109
  Receipt Date: 20200207
  Transmission Date: 20200409
  Serious: Yes (Hospitalization)
  Sender: FDA-Public Use
  Company Number: DE-MYLANLABS-2020M1002111

PATIENT
  Age: 66 Year
  Sex: Female
  Weight: 68 kg

DRUGS (9)
  1. LEVOFLOXACIN. [Suspect]
     Active Substance: LEVOFLOXACIN
     Indication: BRONCHITIS
     Dosage: INSGESAMT 7 TABLETTEN
     Route: 048
     Dates: start: 201811, end: 201811
  2. OFLOX [Suspect]
     Active Substance: OFLOXACIN
     Dosage: 2 PACKUNGEN
     Dates: start: 201810
  3. CEFUROXIME AXETIL. [Suspect]
     Active Substance: CEFUROXIME AXETIL
     Indication: CYSTITIS NONINFECTIVE
     Dosage: UNK
     Dates: start: 201904
  4. CIPRO [Suspect]
     Active Substance: CIPROFLOXACIN HYDROCHLORIDE
     Dosage: 2 DOSAGE FORM(2 DF, UNK (2 PACKUNGEN) )
  5. OFLOX [Suspect]
     Active Substance: OFLOXACIN
     Indication: CYSTITIS NONINFECTIVE
     Dosage: UNK
     Dates: start: 201812
  6. CIPRO [Suspect]
     Active Substance: CIPROFLOXACIN HYDROCHLORIDE
     Dosage: 1000 MILLIGRAM, QD
     Route: 048
     Dates: start: 201902, end: 201902
  7. COTRIM [Suspect]
     Active Substance: SULFAMETHOXAZOLE\TRIMETHOPRIM
     Indication: CYSTITIS NONINFECTIVE
     Dosage: UNK
     Dates: start: 201812
  8. OFLOX [Suspect]
     Active Substance: OFLOXACIN
     Dosage: 2 DOSAGE FORM (2 DF, UNK (2 PACKUNGEN))
  9. CIPRO [Suspect]
     Active Substance: CIPROFLOXACIN HYDROCHLORIDE
     Indication: BRONCHITIS
     Dosage: INSGESAMT 14 TABLETTEN
     Route: 048
     Dates: start: 201311, end: 201311

REACTIONS (13)
  - Fibromyalgia [Unknown]
  - Formication [Unknown]
  - Arthralgia [Unknown]
  - Tendon rupture [Unknown]
  - Musculoskeletal pain [Unknown]
  - General physical health deterioration [Unknown]
  - Back pain [Unknown]
  - Pain in extremity [Unknown]
  - Anxiety [Unknown]
  - Muscular weakness [Unknown]
  - Presyncope [Unknown]
  - Illusion [Unknown]
  - Tendon disorder [Unknown]

NARRATIVE: CASE EVENT DATE: 2019
